FAERS Safety Report 5353155-9 (Version None)
Quarter: 2007Q2

REPORT INFORMATION
  Report Type: 
  Country: None (occurrence: None)
  Receive Date: 20070607
  Receipt Date: 20070529
  Transmission Date: 20071010
  Serious: Yes (Other)
  Sender: FDA-Public Use
  Company Number: GXKR2007GB04667

PATIENT
  Age: 48 Year
  Sex: Female
  Weight: 63.6 kg

DRUGS (4)
  1. ITRACONAZOLE [Suspect]
     Indication: BRONCHOPULMONARY ASPERGILLOSIS ALLERGIC
     Dosage: 200 MG, ORAL
     Route: 048
     Dates: start: 20060130, end: 20060512
  2. AZITHROMYCIN [Concomitant]
  3. FLUTICASONE PROPIONATE [Concomitant]
  4. SALBUTAMOL (SALBUTAMOL) [Concomitant]

REACTIONS (2)
  - ABASIA [None]
  - TENDONITIS [None]
